FAERS Safety Report 7719390-7 (Version None)
Quarter: 2011Q3

REPORT INFORMATION
  Report Type: 
  Country: None (occurrence: None)
  Receive Date: 20110825
  Receipt Date: 20110810
  Transmission Date: 20111222
  Serious: Yes (Hospitalization)
  Sender: FDA-Public Use
  Company Number: PNIS20110006

PATIENT
  Age: 70 Year
  Sex: Female

DRUGS (5)
  1. CYCLOPHOSPHAMIDE [Suspect]
     Indication: COLLAGEN-VASCULAR DISEASE
     Dosage: 800 MG, TWO DOSES, ORAL
     Route: 048
     Dates: start: 20080201, end: 20080201
  2. MIZORIBINE (MIZORIBINE) (150 MILLIGRAM) [Suspect]
     Indication: COLLAGEN-VASCULAR DISEASE
     Dosage: 150 MG, 1 IN 1 D, ORAL
     Route: 048
     Dates: start: 20080201, end: 20080901
  3. PREDNISOLONE [Suspect]
     Indication: COLLAGEN-VASCULAR DISEASE
     Dosage: 40 MG, 1 IN 1 D, ORAL, 35 MG, 1 IN 1 D, ORAL, 17.5 MG, 1 IN 1 D, ORAL
     Route: 048
     Dates: start: 20080901
  4. PREDNISOLONE [Suspect]
     Indication: COLLAGEN-VASCULAR DISEASE
     Dosage: 40 MG, 1 IN 1 D, ORAL, 35 MG, 1 IN 1 D, ORAL, 17.5 MG, 1 IN 1 D, ORAL
     Route: 048
     Dates: start: 20080201, end: 20080201
  5. PREDNISOLONE [Suspect]
     Indication: COLLAGEN-VASCULAR DISEASE
     Dosage: 40 MG, 1 IN 1 D, ORAL, 35 MG, 1 IN 1 D, ORAL, 17.5 MG, 1 IN 1 D, ORAL
     Route: 048
     Dates: start: 20080201, end: 20080901

REACTIONS (10)
  - MITRAL VALVE INCOMPETENCE [None]
  - BARTONELLA TEST POSITIVE [None]
  - MYCOTIC ANEURYSM [None]
  - CARDIAC VALVE REPLACEMENT COMPLICATION [None]
  - POST PROCEDURAL COMPLICATION [None]
  - CARDIAC VALVE VEGETATION [None]
  - BODY TEMPERATURE DECREASED [None]
  - CARDIAC FAILURE CONGESTIVE [None]
  - ENDOCARDITIS BACTERIAL [None]
  - AORTIC VALVE STENOSIS [None]
